FAERS Safety Report 7942078-4 (Version None)
Quarter: 2011Q4

REPORT INFORMATION
  Report Type: 
  Country: None (occurrence: None)
  Receive Date: 20111128
  Receipt Date: 20111125
  Transmission Date: 20120403
  Serious: Yes (Death, Hospitalization)
  Sender: FDA-Public Use
  Company Number: US-JNJFOC-20111002614

PATIENT
  Sex: Female
  Weight: 73.03 kg

DRUGS (10)
  1. DOXORUBICIN HCL [Suspect]
     Route: 042
     Dates: start: 20110616, end: 20110616
  2. ABRAXANE [Suspect]
     Indication: BREAST CANCER
     Route: 065
     Dates: start: 20110907
  3. DOXORUBICIN HCL [Suspect]
     Indication: BREAST CANCER
     Route: 042
     Dates: start: 20101202, end: 20101202
  4. DOXORUBICIN HCL [Suspect]
     Route: 042
     Dates: start: 20101230, end: 20101230
  5. DOXORUBICIN HCL [Suspect]
     Route: 042
     Dates: start: 20110127, end: 20110127
  6. DOXORUBICIN HCL [Suspect]
     Route: 042
     Dates: start: 20110224, end: 20110224
  7. DOXORUBICIN HCL [Suspect]
     Route: 042
     Dates: start: 20110324, end: 20110324
  8. DOXORUBICIN HCL [Suspect]
     Route: 042
     Dates: start: 20110421, end: 20110421
  9. DOXORUBICIN HCL [Suspect]
     Route: 042
     Dates: start: 20110714, end: 20110714
  10. DOXORUBICIN HCL [Suspect]
     Route: 042
     Dates: start: 20110519, end: 20110519

REACTIONS (3)
  - DRUG DOSE OMISSION [None]
  - METASTASES TO CENTRAL NERVOUS SYSTEM [None]
  - CEREBRAL HAEMORRHAGE [None]
